FAERS Safety Report 8710233 (Version 2)
Quarter: 2013Q2

REPORT INFORMATION
  Report Type: Spontaneous
  Country: US (occurrence: US)
  Receive Date: 20120807
  Receipt Date: 20130416
  Transmission Date: 20140414
  Serious: No
  Sender: FDA-Public Use
  Company Number: US-009507513-1207USA011531

PATIENT
  Age: 52 Year
  Sex: Female

DRUGS (7)
  1. ASMANEX TWISTHALER [Suspect]
     Indication: ASTHMA
     Dosage: UNK
     Route: 048
     Dates: start: 2012
  2. SINGULAIR [Concomitant]
  3. LISINOPRIL [Concomitant]
  4. MOBIC [Concomitant]
  5. ZYRTEC [Concomitant]
  6. TOPAMAX [Concomitant]
  7. ANTIMICROBIAL (UNSPECIFIED) [Concomitant]

REACTIONS (2)
  - Asthma [Not Recovered/Not Resolved]
  - Product quality issue [Unknown]
